FAERS Safety Report 8927437 (Version 2)
Quarter: 2012Q4

REPORT INFORMATION
  Report Type: 
  Country: JP (occurrence: JP)
  Receive Date: 20121127
  Receipt Date: 20121218
  Transmission Date: 20130627
  Serious: Yes (Hospitalization)
  Sender: FDA-Public Use
  Company Number: PHHY2012JP108296

PATIENT
  Age: 74 Year
  Sex: Male

DRUGS (8)
  1. NEORAL [Suspect]
     Indication: INTERSTITIAL LUNG DISEASE
     Dosage: UNK UKN, UNK
     Route: 048
  2. SOLU MEDROL [Suspect]
     Dosage: UNK UKN, UNK
     Route: 042
  3. PREDONINE [Suspect]
  4. ENDOXAN [Suspect]
  5. BAKTAR [Suspect]
  6. TAKEPRON [Suspect]
  7. WARFARIN [Suspect]
     Dosage: UNK UKN, UNK
     Route: 048
  8. NORVASC [Suspect]
     Route: 048

REACTIONS (1)
  - Interstitial lung disease [Not Recovered/Not Resolved]
